FAERS Safety Report 5000672-7 (Version None)
Quarter: 2006Q2

REPORT INFORMATION
  Report Type: 
  Country: None (occurrence: None)
  Receive Date: 20060512
  Receipt Date: 20060502
  Transmission Date: 20061013
  Serious: Yes (Hospitalization)
  Sender: FDA-Public Use
  Company Number: FR-BRISTOL-MYERS SQUIBB COMPANY-13365366

PATIENT
  Age: 58 Year
  Sex: Male

DRUGS (5)
  1. LOPRIL TABS [Suspect]
     Indication: ANEURYSM
     Route: 048
     Dates: end: 20060131
  2. ESIDRIX [Suspect]
     Indication: ANEURYSM
  3. TENORMIN [Concomitant]
  4. AMLOR [Concomitant]
  5. EUPRESSYL [Concomitant]

REACTIONS (4)
  - AGRANULOCYTOSIS [None]
  - ANAEMIA [None]
  - GOUTY ARTHRITIS [None]
  - PNEUMONIA [None]
